FAERS Safety Report 15693324 (Version 1)
Quarter: 2018Q4

REPORT INFORMATION
  Report Type: Spontaneous
  Country: CH (occurrence: CH)
  Receive Date: 20181206
  Receipt Date: 20181206
  Transmission Date: 20190205
  Serious: Yes (Life-Threatening, Hospitalization, Other)
  Sender: FDA-Public Use
  Company Number: CH-ASTRAZENECA-2018SF56408

PATIENT
  Sex: Female

DRUGS (6)
  1. NEXIUM [Suspect]
     Active Substance: ESOMEPRAZOLE MAGNESIUM
     Indication: UPPER GASTROINTESTINAL HAEMORRHAGE
     Dosage: DILUTION 0.8 MG/L
     Route: 041
     Dates: start: 20181106, end: 20181107
  2. BRIVUDINE [Concomitant]
     Active Substance: BRIVUDINE
     Indication: HERPES ZOSTER
     Route: 048
     Dates: start: 20180828, end: 20180904
  3. COVERAM PLUS [Suspect]
     Active Substance: AMLODIPINE BESYLATE\INDAPAMIDE\PERINDOPRIL ARGININE
     Indication: HYPERTENSION
     Dosage: P???RINDOPRIL ARGININE/AMLODIPINE/INDAPAMIDE 10/5/2.5 MG 1X/J
     Route: 048
     Dates: start: 20181016, end: 20181029
  4. PREDNISONE. [Suspect]
     Active Substance: PREDNISONE
     Indication: STEVENS-JOHNSON SYNDROME
     Dosage: 50.0MG UNKNOWN
     Route: 048
     Dates: start: 20181103, end: 20181106
  5. COVERSUM [Concomitant]
     Active Substance: PERINDOPRIL
     Dosage: TRAITEMENT HABITUEL (5 MG DEPUIS MARS 2018 PUIS MAJORATION ??? 10 MG JUSQU^AU 15.10.2018)
     Route: 048
     Dates: start: 201803, end: 20181015
  6. CLEXANE [Suspect]
     Active Substance: ENOXAPARIN SODIUM
     Indication: THROMBOSIS PROPHYLAXIS
     Dosage: 40.0MG UNKNOWN
     Route: 058
     Dates: start: 20181101, end: 20181106

REACTIONS (3)
  - Administration site necrosis [Recovering/Resolving]
  - Gastrointestinal haemorrhage [Recovering/Resolving]
  - Stevens-Johnson syndrome [Recovering/Resolving]
